FAERS Safety Report 9140246 (Version 1)
Quarter: 2013Q1

REPORT INFORMATION
  Report Type: Spontaneous
  Country: ZA (occurrence: ZA)
  Receive Date: 20130305
  Receipt Date: 20130305
  Transmission Date: 20140127
  Serious: Yes (Death, Hospitalization)
  Sender: FDA-Public Use
  Company Number: ZA-GILEAD-2013-0070881

PATIENT
  Age: 22 Year
  Sex: Female

DRUGS (4)
  1. TENOFOVIR DISOPROXIL FUMARATE [Suspect]
     Indication: HIV INFECTION
  2. NEVIRAPINE [Suspect]
     Indication: HIV INFECTION
     Dosage: 200 MG, QD
  3. NEVIRAPINE [Suspect]
     Dosage: 200 MG, BID
  4. LAMIVUDINE [Suspect]
     Indication: HIV INFECTION

REACTIONS (2)
  - Stillbirth [Fatal]
  - Hepatic failure [Not Recovered/Not Resolved]
